FAERS Safety Report 17763883 (Version 2)
Quarter: 2020Q2

REPORT INFORMATION
  Report Type: Spontaneous
  Country: US (occurrence: US)
  Receive Date: 20200510
  Receipt Date: 20200610
  Transmission Date: 20200714
  Serious: No
  Sender: FDA-Public Use
  Company Number: US-ASTRAZENECA-2020SE59072

PATIENT
  Sex: Male
  Weight: 68 kg

DRUGS (4)
  1. GABAPENTIN. [Concomitant]
     Active Substance: GABAPENTIN
     Indication: RESTLESS LEGS SYNDROME
  2. ALBUTEROL. [Concomitant]
     Active Substance: ALBUTEROL
     Indication: EMPHYSEMA
     Dosage: AS REQUIRED
     Dates: start: 202004
  3. CELECOXIB. [Concomitant]
     Active Substance: CELECOXIB
     Indication: OSTEOPOROSIS
  4. SYMBICORT [Suspect]
     Active Substance: BUDESONIDE\FORMOTEROL FUMARATE DIHYDRATE
     Indication: EMPHYSEMA
     Dosage: 160/4.5 MCG, 2 PUFFS , TWICE A DAY.
     Route: 055
     Dates: start: 202004

REACTIONS (7)
  - Fatigue [Unknown]
  - Drug ineffective [Unknown]
  - Device issue [Unknown]
  - Night sweats [Unknown]
  - Productive cough [Not Recovered/Not Resolved]
  - Aphonia [Unknown]
  - Dysphonia [Unknown]
